FAERS Safety Report 6527133-8 (Version None)
Quarter: 2010Q1

REPORT INFORMATION
  Report Type: 
  Country: None (occurrence: None)
  Receive Date: 20100105
  Receipt Date: 20091228
  Transmission Date: 20100710
  Serious: Yes (Other)
  Sender: FDA-Public Use
  Company Number: US-ELI_LILLY_AND_COMPANY-US200912005817

PATIENT
  Age: 77 Year
  Sex: Female

DRUGS (2)
  1. HUMALOG [Suspect]
     Indication: DIABETES MELLITUS
     Dosage: UNK, AS NEEDED
  2. HUMALOG [Suspect]
     Dosage: 5 U, 3/D
     Dates: start: 20090201

REACTIONS (4)
  - DECREASED APPETITE [None]
  - HYPERSENSITIVITY [None]
  - OVARIAN CANCER [None]
  - RHINORRHOEA [None]
